FAERS Safety Report 6014361-3 (Version None)
Quarter: 2008Q4

REPORT INFORMATION
  Report Type: 
  Country: None (occurrence: None)
  Receive Date: 20081219
  Receipt Date: 20080508
  Transmission Date: 20090506
  Serious: No
  Sender: FDA-Public Use
  Company Number: A0726893A

PATIENT
  Age: 83 Year
  Sex: Male

DRUGS (13)
  1. AVODART [Suspect]
     Indication: BENIGN PROSTATIC HYPERPLASIA
     Dosage: .5MG PER DAY
     Route: 048
     Dates: start: 20080416
  2. LASIX [Concomitant]
  3. FLOMAX [Concomitant]
  4. GLIPIZIDE [Concomitant]
  5. ISOSORBIDE [Concomitant]
  6. ASPIRIN [Concomitant]
  7. UNKNOWN MEDICATION [Concomitant]
  8. ACTONEL [Concomitant]
  9. FOLIC ACID [Concomitant]
  10. LIPITOR [Concomitant]
  11. POTASSIUM CHLORIDE [Concomitant]
  12. ZETIA [Concomitant]
  13. LISIPRIL [Concomitant]

REACTIONS (1)
  - DYSURIA [None]
